FAERS Safety Report 11804187 (Version 1)
Quarter: 2015Q4

REPORT INFORMATION
  Report Type: Report from Study
  Country: US (occurrence: US)
  Receive Date: 20151204
  Receipt Date: 20151204
  Transmission Date: 20160305
  Serious: Yes (Hospitalization)
  Sender: FDA-Public Use
  Company Number: US-JNJFOC-20151019271

PATIENT
  Age: 77 Year
  Sex: Male
  Weight: 109 kg

DRUGS (13)
  1. IMBRUVICA [Suspect]
     Active Substance: IBRUTINIB
     Indication: LYMPHOMA
     Route: 048
  2. IMBRUVICA [Suspect]
     Active Substance: IBRUTINIB
     Indication: LYMPHOMA
     Route: 048
     Dates: start: 20150828, end: 2015
  3. FLUDROCORTISONE [Concomitant]
     Active Substance: FLUDROCORTISONE
  4. PRIMIDONE. [Concomitant]
     Active Substance: PRIMIDONE
  5. SYNTHROID [Concomitant]
     Active Substance: LEVOTHYROXINE SODIUM
  6. CENTRUM CARDIO [Concomitant]
     Active Substance: VITAMINS
  7. LASIX [Concomitant]
     Active Substance: FUROSEMIDE
  8. ZOLOFT [Concomitant]
     Active Substance: SERTRALINE HYDROCHLORIDE
  9. TOVIAZ [Concomitant]
     Active Substance: FESOTERODINE FUMARATE
  10. DIGOXIN. [Concomitant]
     Active Substance: DIGOXIN
  11. LOPID [Concomitant]
     Active Substance: GEMFIBROZIL
  12. LASIX [Concomitant]
     Active Substance: FUROSEMIDE
  13. WARFARIN [Concomitant]
     Active Substance: WARFARIN

REACTIONS (14)
  - Pneumonia [Unknown]
  - Pulmonary congestion [Unknown]
  - Off label use [Unknown]
  - Urine output decreased [Unknown]
  - Dyspnoea [Unknown]
  - Disease progression [Unknown]
  - Product use issue [Unknown]
  - Fall [Unknown]
  - Cough [Unknown]
  - Cardiac failure congestive [Unknown]
  - Hemiparesis [Unknown]
  - Fluid overload [Unknown]
  - Peripheral swelling [Unknown]
  - Asthenia [Unknown]

NARRATIVE: CASE EVENT DATE: 2015
